FAERS Safety Report 11538569 (Version 2)
Quarter: 2015Q4

REPORT INFORMATION
  Report Type: Report from Study
  Country: US (occurrence: US)
  Receive Date: 20150922
  Receipt Date: 20151005
  Transmission Date: 20160304
  Serious: No
  Sender: FDA-Public Use
  Company Number: US-AMGEN-USASP2015096734

PATIENT
  Age: 42 Year
  Sex: Female

DRUGS (1)
  1. ENBREL [Suspect]
     Active Substance: ETANERCEPT
     Indication: PSORIASIS
     Dosage: 50 MG, 2 TIMES/WK
     Route: 058

REACTIONS (6)
  - Psoriasis [Not Recovered/Not Resolved]
  - Hypoacusis [Unknown]
  - Hearing impaired [Unknown]
  - Lip discolouration [Unknown]
  - Nasopharyngitis [Unknown]
  - Ear congestion [Unknown]

NARRATIVE: CASE EVENT DATE: 2015
